FAERS Safety Report 8250873-X (Version None)
Quarter: 2012Q2

REPORT INFORMATION
  Report Type: 
  Country: None (occurrence: None)
  Receive Date: 20120402
  Receipt Date: 20120327
  Transmission Date: 20120825
  Serious: Yes (Life-Threatening, Other)
  Sender: FDA-Public Use
  Company Number: NL-ROXANE LABORATORIES, INC.-2012-RO-00904RO

PATIENT
  Age: 53 Year
  Sex: Female
  Weight: 98 kg

DRUGS (4)
  1. CLOZAPINE [Suspect]
     Indication: BIPOLAR DISORDER
     Dosage: 525 MG
  2. LOPERAMIDE [Suspect]
     Indication: IRRITABLE BOWEL SYNDROME
  3. POLYETHYLENE GLYCOL [Suspect]
     Indication: IRRITABLE BOWEL SYNDROME
  4. LITHIUM CARBONATE [Suspect]
     Indication: BIPOLAR DISORDER
     Dosage: 600 MG

REACTIONS (3)
  - OEDEMA PERIPHERAL [None]
  - ATRIOVENTRICULAR BLOCK COMPLETE [None]
  - ORTHOSTATIC HYPOTENSION [None]
